FAERS Safety Report 4314031-3 (Version None)
Quarter: 2004Q1

REPORT INFORMATION
  Report Type: 
  Country: None (occurrence: None)
  Receive Date: 20040305
  Receipt Date: 20040225
  Transmission Date: 20041129
  Serious: No
  Sender: FDA-Public Use
  Company Number: 04P-114-0251763-00

PATIENT
  Age: 34 Year
  Sex: Male

DRUGS (2)
  1. DEPAKENE [Suspect]
     Indication: EPILEPSY
     Dosage: 500 MG, 3 IN 1 D, ORAL
     Route: 048
  2. LACTULOSE [Concomitant]

REACTIONS (3)
  - GRAND MAL CONVULSION [None]
  - HEAD INJURY [None]
  - WOUND [None]
